FAERS Safety Report 8831856 (Version 1)
Quarter: 2012Q4

REPORT INFORMATION
  Report Type: 
  Country: US (occurrence: US)
  Receive Date: 20121008
  Receipt Date: 20121008
  Transmission Date: 20130627
  Serious: Yes (Other)
  Sender: FDA-Public Use
  Company Number: US-ELI_LILLY_AND_COMPANY-US201206002516

PATIENT
  Age: 70 Year
  Sex: Male

DRUGS (22)
  1. FORTEO [Suspect]
     Indication: OSTEOPOROSIS
     Dosage: 20 ug, qd
     Route: 065
     Dates: start: 20120606
  2. FORTEO [Suspect]
     Dosage: 20 ug, qd
     Dates: start: 20120806
  3. ENBREL [Concomitant]
     Dosage: 0.98 ml, weekly (1/W)
  4. METHOTREXATE [Concomitant]
     Dosage: 20 mg, weekly (1/W)
  5. HYDROCODONE [Concomitant]
     Indication: PAIN
     Dosage: UNK, qd
  6. ADVAIR [Concomitant]
     Dosage: UNK, bid
  7. PROAIR [Concomitant]
     Indication: ASTHMA
     Dosage: UNK, prn
  8. FLUTICASONE [Concomitant]
     Dosage: 50 ug, qd
  9. XALATAN [Concomitant]
  10. RESTASIS [Concomitant]
  11. TERAZOSIN [Concomitant]
     Dosage: 5 mg, qd
  12. AZOR [Concomitant]
     Dosage: UNK, qd
  13. TRICOR [Concomitant]
     Dosage: 145 mg, qd
  14. WELCHOL [Concomitant]
     Dosage: 6.25 mg, every 4 hrs
  15. NEXIUM [Concomitant]
  16. LEVITRA [Concomitant]
     Dosage: UNK, prn
  17. FOLIC ACID [Concomitant]
     Dosage: 1 mg, qd
  18. BIOFLEX                            /00943602/ [Concomitant]
  19. GLUCOSAMINE [Concomitant]
     Dosage: UNK, bid
  20. CALCIUM CITRATE [Concomitant]
     Dosage: 630 mg, qd
  21. VITAMIN D NOS [Concomitant]
     Dosage: 1000 IU, bid
  22. TYLENOL PM [Concomitant]
     Dosage: UNK, each evening

REACTIONS (8)
  - Lung carcinoma cell type unspecified stage I [Unknown]
  - Pulmonary mass [Unknown]
  - Positron emission tomogram abnormal [Unknown]
  - Bone pain [Unknown]
  - Musculoskeletal pain [Unknown]
  - Myalgia [Unknown]
  - Arthralgia [Unknown]
  - Dizziness [Unknown]
